FAERS Safety Report 11895731 (Version 1)
Quarter: 2016Q1

REPORT INFORMATION
  Report Type: Spontaneous
  Country: US (occurrence: US)
  Receive Date: 20160107
  Receipt Date: 20160107
  Transmission Date: 20160526
  Serious: No
  Sender: FDA-Public Use
  Company Number: PHEH2015US005827

PATIENT
  Age: 14 Year
  Sex: Female

DRUGS (3)
  1. ILARIS [Suspect]
     Active Substance: CANAKINUMAB
     Dosage: 260 ML, QD
     Route: 065
     Dates: start: 20140501
  2. ILARIS [Suspect]
     Active Substance: CANAKINUMAB
     Dosage: 1ML IN RIGHT THIGH AND 0.7 ML IN LEFT THIGH
     Route: 065
     Dates: start: 20150416, end: 20160103
  3. ILARIS [Suspect]
     Active Substance: CANAKINUMAB
     Dosage: 260 MG, UNK
     Route: 065
     Dates: start: 20150320

REACTIONS (4)
  - Injection site haemorrhage [Unknown]
  - Injection site extravasation [Unknown]
  - Injection site pain [Recovered/Resolved]
  - Injection site mass [Recovered/Resolved]

NARRATIVE: CASE EVENT DATE: 20150320
